FAERS Safety Report 9782319 (Version 2)
Quarter: 2013Q4

REPORT INFORMATION
  Report Type: Spontaneous
  Country: JP (occurrence: JP)
  Receive Date: 20131226
  Receipt Date: 20131226
  Transmission Date: 20140711
  Serious: Yes (Death)
  Sender: FDA-Public Use
  Company Number: JP-ELI_LILLY_AND_COMPANY-JP201306004640

PATIENT
  Age: 55 Year
  Sex: Male

DRUGS (14)
  1. ZYPREXA [Suspect]
     Dosage: 10 MG, BID
     Route: 048
     Dates: start: 200708, end: 20110122
  2. LIMAS [Concomitant]
     Indication: PRODUCT USED FOR UNKNOWN INDICATION
     Dosage: 200 MG, TID
     Route: 048
     Dates: start: 200708
  3. VALERIN [Concomitant]
     Indication: PRODUCT USED FOR UNKNOWN INDICATION
     Dosage: 200 MG, TID
     Route: 048
     Dates: start: 200708
  4. VEGETAMIN A [Concomitant]
     Indication: PRODUCT USED FOR UNKNOWN INDICATION
     Dosage: UNK
     Dates: start: 200708
  5. SENNOSIDE [Concomitant]
     Indication: PRODUCT USED FOR UNKNOWN INDICATION
     Dosage: 60 MG, QD
     Route: 048
     Dates: start: 200708
  6. SENNOSIDE [Concomitant]
     Dosage: 36 MG, QD
     Route: 048
     Dates: start: 20110113
  7. GASMOTIN [Concomitant]
     Indication: PRODUCT USED FOR UNKNOWN INDICATION
     Dosage: 5 MG, TID
     Route: 048
     Dates: start: 200708
  8. PANTETHINE [Concomitant]
     Indication: PRODUCT USED FOR UNKNOWN INDICATION
     Dosage: 100 MG, TID
     Route: 048
     Dates: start: 200708
  9. NEOPERIDOL [Concomitant]
     Indication: PRODUCT USED FOR UNKNOWN INDICATION
     Dosage: 100 MG, UNK
     Route: 030
     Dates: start: 200708
  10. DORAL [Concomitant]
     Indication: PRODUCT USED FOR UNKNOWN INDICATION
     Dosage: 15 MG, QD
     Route: 048
     Dates: start: 200708
  11. DEPAKENE [Concomitant]
     Indication: PRODUCT USED FOR UNKNOWN INDICATION
     Dosage: 4 ML, TID
     Route: 048
     Dates: start: 20110105
  12. DEPAKENE [Concomitant]
     Dosage: 200 MG, TID
     Route: 048
     Dates: start: 20110113
  13. GASTER [Concomitant]
     Indication: PRODUCT USED FOR UNKNOWN INDICATION
     Dosage: 20 MG, BID
     Route: 048
     Dates: start: 20110105
  14. SEFTAC [Concomitant]
     Indication: PRODUCT USED FOR UNKNOWN INDICATION
     Dosage: 0.5 MG, TID
     Route: 048
     Dates: start: 20110113

REACTIONS (7)
  - Sudden death [Fatal]
  - Toxicity to various agents [Fatal]
  - Drug interaction [Unknown]
  - Drug level increased [Unknown]
  - C-reactive protein increased [Unknown]
  - White blood cell count increased [Unknown]
  - Pyrexia [Recovered/Resolved]
